FAERS Safety Report 10052824 (Version 1)
Quarter: 2014Q1

REPORT INFORMATION
  Report Type: Spontaneous
  Country: GB (occurrence: None)
  Receive Date: 20140331
  Receipt Date: 20140331
  Transmission Date: 20141002
  Serious: Yes (Life-Threatening, Other)
  Sender: FDA-Public Use
  Company Number: 2014P1002455

PATIENT
  Age: 57 Year
  Sex: Male

DRUGS (15)
  1. AMOXICILLIN /CLAVULANATE [Suspect]
     Indication: CHRONIC OBSTRUCTIVE PULMONARY DISEASE
     Route: 048
  2. WARFARIN [Suspect]
     Indication: DEEP VEIN THROMBOSIS
  3. QUININE [Concomitant]
  4. RAMIPRIL [Concomitant]
  5. CARBOCISTEINE [Concomitant]
  6. LEVOTHYROXINE [Concomitant]
  7. DILTIAZEM [Concomitant]
  8. BUDESONIDE [Concomitant]
  9. ASPIRIN [Suspect]
  10. SIMVASTATIN [Suspect]
  11. FORMOTEROL [Concomitant]
  12. TIOTROPIUM [Concomitant]
  13. SALBUTAMOL [Concomitant]
  14. PREDNISOLONE [Concomitant]
  15. FRAGMIN [Concomitant]

REACTIONS (11)
  - International normalised ratio increased [None]
  - Erythema [None]
  - Rash macular [None]
  - Cellulitis [None]
  - Oedema [None]
  - Muscle tightness [None]
  - Haemorrhage subcutaneous [None]
  - Wound haemorrhage [None]
  - Haemoglobin decreased [None]
  - Compartment syndrome [None]
  - Incorrect dose administered [None]
